FAERS Safety Report 24789187 (Version 1)
Quarter: 2024Q4

REPORT INFORMATION
  Report Type: Spontaneous
  Country: US (occurrence: None)
  Receive Date: 20241228
  Receipt Date: 20241228
  Transmission Date: 20250114
  Serious: No
  Sender: Public
  Company Number: None

PATIENT
  Age: 30 Year
  Sex: Female
  Weight: 130.5 kg

DRUGS (4)
  1. PAXLOVID [Suspect]
     Active Substance: NIRMATRELVIR\RITONAVIR
     Indication: COVID-19
     Dosage: 30 TABLETS TWICE A DAY ORAL
     Route: 048
     Dates: start: 20241215, end: 20241219
  2. LEVOTHYROXINE [Concomitant]
     Active Substance: LEVOTHYROXINE
  3. LOSARTAN [Concomitant]
     Active Substance: LOSARTAN
  4. MUCINEX [Concomitant]
     Active Substance: GUAIFENESIN

REACTIONS (1)
  - COVID-19 [None]

NARRATIVE: CASE EVENT DATE: 20241226
